FAERS Safety Report 15980331 (Version 24)
Quarter: 2023Q2

REPORT INFORMATION
  Report Type: Spontaneous
  Country: US (occurrence: US)
  Receive Date: 20190219
  Receipt Date: 20230620
  Transmission Date: 20230722
  Serious: Yes (Disabling, Other)
  Sender: FDA-Public Use
  Company Number: US-AMGEN-USASP2018187684

PATIENT
  Age: 81 Year
  Sex: Female

DRUGS (5)
  1. PROLIA [Suspect]
     Active Substance: DENOSUMAB
     Indication: Osteoporosis postmenopausal
     Dosage: 60 MILLIGRAM, Q6MO
     Route: 065
     Dates: start: 201202
  2. PROLIA [Suspect]
     Active Substance: DENOSUMAB
     Dosage: 60 MILLIGRAM, Q6MO (EVERY 6 MONTHS AND 5 DAYS)
     Route: 065
     Dates: start: 201805
  3. VITAMINS [Concomitant]
     Active Substance: VITAMINS
  4. VITAMIN D3 [Concomitant]
     Active Substance: CHOLECALCIFEROL
  5. VITAMIN B [Concomitant]
     Active Substance: VITAMIN B

REACTIONS (42)
  - Dry age-related macular degeneration [Not Recovered/Not Resolved]
  - Neovascular age-related macular degeneration [Not Recovered/Not Resolved]
  - Spinal compression fracture [Recovering/Resolving]
  - C-telopeptide increased [Unknown]
  - Abdominal distension [Not Recovered/Not Resolved]
  - General physical health deterioration [Unknown]
  - Tooth fracture [Not Recovered/Not Resolved]
  - Hypergammaglobulinaemia benign monoclonal [Unknown]
  - Dental implantation [Unknown]
  - Inflammation [Recovering/Resolving]
  - Inappropriate schedule of product administration [Unknown]
  - Weight increased [Unknown]
  - Hypophagia [Unknown]
  - Feeling abnormal [Unknown]
  - Ill-defined disorder [Not Recovered/Not Resolved]
  - Total lung capacity decreased [Unknown]
  - Body height decreased [Not Recovered/Not Resolved]
  - Bone density decreased [Recovered/Resolved]
  - Bone demineralisation [Unknown]
  - Blood calcium increased [Unknown]
  - Spinal deformity [Unknown]
  - Breast mass [Unknown]
  - Drug clearance increased [Unknown]
  - Gastritis [Unknown]
  - Gait disturbance [Unknown]
  - Immune system disorder [Unknown]
  - Formication [Unknown]
  - Sleep disorder due to a general medical condition [Recovered/Resolved]
  - Nerve injury [Unknown]
  - Muscle injury [Unknown]
  - Product dose omission issue [Unknown]
  - Wisdom teeth removal [Unknown]
  - Pain [Not Recovered/Not Resolved]
  - Infection [Unknown]
  - Asthenia [Unknown]
  - Weight decreased [Unknown]
  - Muscle spasms [Unknown]
  - Fatigue [Unknown]
  - Back pain [Not Recovered/Not Resolved]
  - Constipation [Unknown]
  - Therapeutic product effect incomplete [Unknown]
  - Urticaria [Unknown]

NARRATIVE: CASE EVENT DATE: 20180101
